FAERS Safety Report 9719301 (Version 2)
Quarter: 2013Q4

REPORT INFORMATION
  Report Type: Report from Study
  Country: CA (occurrence: CA)
  Receive Date: 20131127
  Receipt Date: 20131127
  Transmission Date: 20140711
  Serious: Yes (Death, Other)
  Sender: FDA-Public Use
  Company Number: PHHY2013CA127573

PATIENT
  Sex: Male

DRUGS (7)
  1. CLOZARIL [Suspect]
     Indication: SCHIZOAFFECTIVE DISORDER BIPOLAR TYPE
     Dosage: 300 MG, QHS (INCREASED TO 325 MG)
     Route: 048
     Dates: start: 20130920
  2. CLOZARIL [Suspect]
     Indication: SCHIZOAFFECTIVE DISORDER DEPRESSIVE TYPE
  3. LITHIUM [Concomitant]
     Dosage: 1200 MG, QHS
     Route: 048
  4. METFORMIN [Concomitant]
     Dosage: 2500 MG, QD (1500 MG QAM AND 1000 MG QHS)
  5. GLYBURIDE [Concomitant]
     Dosage: 10 MG, BID
     Route: 048
  6. ROSUVASTATIN [Concomitant]
     Dosage: 10 MG, QHS
     Route: 048
  7. ACARBOSE [Concomitant]
     Dosage: 25 MG, TID
     Route: 048

REACTIONS (1)
  - Myocardial infarction [Fatal]
